FAERS Safety Report 23788518 (Version 1)
Quarter: 2024Q2

REPORT INFORMATION
  Report Type: Spontaneous
  Country: US (occurrence: US)
  Receive Date: 20240426
  Receipt Date: 20240426
  Transmission Date: 20240715
  Serious: No
  Sender: FDA-Public Use
  Company Number: US-PTx-2023000054

PATIENT
  Sex: Female

DRUGS (11)
  1. LEUKINE [Suspect]
     Active Substance: SARGRAMOSTIM
     Indication: Adrenal gland cancer
     Dosage: 250 MCG: INJECT 130 MCG SC EVERY DAY FOR 3 DAYS PER PROTOCOL
     Route: 058
     Dates: start: 20210521
  2. ACETAMINOPHN SUS 160/5ML [Concomitant]
     Indication: Product used for unknown indication
     Dosage: 160/5 ML
     Route: 065
  3. DEXAMETHASON CON 1MG/ML [Concomitant]
     Indication: Product used for unknown indication
     Dosage: 1MG/ML
     Route: 065
  4. EMEND SUS [Concomitant]
     Indication: Product used for unknown indication
     Dosage: 125 MG
     Route: 065
  5. HYDROXYZ HCL SYP 10MG/5ML [Concomitant]
     Indication: Product used for unknown indication
     Dosage: 10MG/5ML
     Route: 065
  6. NEULASTA INJ 6MG/0.6M [Concomitant]
     Indication: Product used for unknown indication
     Dosage: 6MG/0.6M
     Route: 065
  7. OMEPRAZOLE SODIUM [Concomitant]
     Active Substance: OMEPRAZOLE SODIUM
     Indication: Product used for unknown indication
     Dosage: 20 MG
     Route: 065
  8. OMEPRAZOLE SODIUM [Concomitant]
     Active Substance: OMEPRAZOLE SODIUM
     Indication: Product used for unknown indication
     Dosage: 40 MG
     Route: 065
  9. ONDANSETRON SOL 4MG/5ML [Concomitant]
     Indication: Product used for unknown indication
     Dosage: 4MG/5ML
     Route: 065
  10. OXYCODONE SOL 5MG/5ML [Concomitant]
     Indication: Product used for unknown indication
     Dosage: 5MG/5ML
     Route: 065
  11. SSKI SOL 1GM/ML [Concomitant]
     Indication: Product used for unknown indication
     Dosage: 1G/ML
     Route: 065

REACTIONS (2)
  - Injection site erythema [Not Recovered/Not Resolved]
  - Injection site reaction [Not Recovered/Not Resolved]

NARRATIVE: CASE EVENT DATE: 20230501
